FAERS Safety Report 9018308 (Version 1)
Quarter: 2013Q1

REPORT INFORMATION
  Report Type: Spontaneous
  Country: US (occurrence: None)
  Receive Date: 20130111
  Receipt Date: 20130111
  Transmission Date: 20140127
  Serious: Yes (Hospitalization)
  Sender: FDA-Public Use
  Company Number: None

PATIENT
  Age: 48 Year
  Sex: Female
  Weight: 55.5 kg

DRUGS (14)
  1. GEMCITABINE [Suspect]
     Indication: PANCREATIC CARCINOMA METASTATIC
     Route: 042
     Dates: start: 20120727
  2. CISPLATIN [Suspect]
     Indication: PANCREATIC CARCINOMA
     Dosage: 45 MG IV 3  3200MG IV
     Route: 042
     Dates: start: 20120727
  3. 0.9 SODIUM CHLORIDE FLUSH [Concomitant]
  4. CELEXA [Concomitant]
  5. LOMOTIL [Concomitant]
  6. DURAGESIC PATCH [Concomitant]
  7. CREON [Concomitant]
  8. ACTIQ LOLLIPOP [Concomitant]
  9. PROCHLORPERAZINE [Concomitant]
  10. SPRINTECH [Concomitant]
  11. MARINOL [Concomitant]
  12. ZOFRAN [Concomitant]
  13. DILAUDID [Concomitant]
  14. HEPARIN [Concomitant]

REACTIONS (3)
  - Duodenal ulcer [None]
  - Anaemia [None]
  - Haematochezia [None]
